FAERS Safety Report 6753515-5 (Version None)
Quarter: 2010Q2

REPORT INFORMATION
  Report Type: 
  Country: None (occurrence: None)
  Receive Date: 20100603
  Receipt Date: 20100524
  Transmission Date: 20101027
  Serious: Yes (Hospitalization, Other)
  Sender: FDA-Public Use
  Company Number: BR-ABBOTT-10P-020-0647130-00

PATIENT
  Sex: Female
  Weight: 76 kg

DRUGS (4)
  1. HUMIRA [Suspect]
     Indication: PSORIASIS
     Route: 058
     Dates: start: 20040101, end: 20060101
  2. HUMIRA [Suspect]
  3. HUMIRA [Suspect]
  4. IMURAN [Concomitant]
     Indication: SYSTEMIC LUPUS ERYTHEMATOSUS
     Route: 048

REACTIONS (20)
  - ALOPECIA [None]
  - BLOOD OESTROGEN DECREASED [None]
  - CANDIDIASIS [None]
  - COMA [None]
  - HEADACHE [None]
  - LIVER DISORDER [None]
  - LUNG DISORDER [None]
  - MOUTH ULCERATION [None]
  - NEPHROLITHIASIS [None]
  - PSORIASIS [None]
  - PYELONEPHRITIS [None]
  - RENAL IMPAIRMENT [None]
  - SEPSIS [None]
  - SPEECH DISORDER [None]
  - STEVENS-JOHNSON SYNDROME [None]
  - THROAT LESION [None]
  - URINARY INCONTINENCE [None]
  - URINARY TRACT INFECTION [None]
  - VOMITING [None]
  - WEIGHT DECREASED [None]
